FAERS Safety Report 5257983-X (Version None)
Quarter: 2007Q1

REPORT INFORMATION
  Report Type: 
  Country: None (occurrence: None)
  Receive Date: 20070307
  Receipt Date: 20061214
  Transmission Date: 20070707
  Serious: No
  Sender: FDA-Public Use
  Company Number: US-GLAXOSMITHKLINE-A0628692A

PATIENT
  Age: 65 Year
  Sex: Female
  Weight: 70 kg

DRUGS (2)
  1. REQUIP [Suspect]
     Indication: RESTLESS LEGS SYNDROME
     Dosage: 2MG AT NIGHT
     Route: 048
     Dates: start: 20051010, end: 20061125
  2. UNSPECIFIED MEDICATION [Concomitant]

REACTIONS (1)
  - OBSESSIVE-COMPULSIVE DISORDER [None]
